FAERS Safety Report 7827674-7 (Version None)
Quarter: 2011Q4

REPORT INFORMATION
  Report Type: 
  Country: None (occurrence: None)
  Receive Date: 20111020
  Receipt Date: 20111013
  Transmission Date: 20120403
  Serious: Yes (Other)
  Sender: FDA-Public Use
  Company Number: US-ROCHE-1004663

PATIENT
  Age: 61 Year
  Sex: Female
  Weight: 59.9 kg

DRUGS (4)
  1. CLONAZEPAM [Suspect]
     Indication: TINNITUS
     Route: 048
  2. PREGABALIN [Suspect]
     Dates: end: 20110909
  3. ALENDRONATE SODIUM [Suspect]
     Indication: TINNITUS
  4. PREGABALIN [Suspect]
     Indication: BACK PAIN
     Route: 048
     Dates: start: 20110830, end: 20110909

REACTIONS (2)
  - TINNITUS [None]
  - HALLUCINATION [None]
